FAERS Safety Report 9401126 (Version 2)
Quarter: 2013Q3

REPORT INFORMATION
  Report Type: Report from Study
  Country: US (occurrence: US)
  Receive Date: 20130715
  Receipt Date: 20130809
  Transmission Date: 20140515
  Serious: Yes (Other)
  Sender: FDA-Public Use
  Company Number: US-ABBOTT-13P-163-1116121-00

PATIENT
  Age: 52 Year
  Sex: Female
  Weight: 115.77 kg

DRUGS (15)
  1. HUMIRA [Suspect]
     Indication: RHEUMATOID ARTHRITIS
     Dates: end: 20130611
  2. VITAMIN D [Concomitant]
     Indication: ARTHRITIS
  3. VITAMIN D [Concomitant]
     Indication: VITAMIN D DEFICIENCY
  4. FLEXERIL [Concomitant]
     Indication: MUSCLE SPASMS
  5. CYMBALTA [Concomitant]
     Indication: FIBROMYALGIA
  6. GABAPENTIN [Concomitant]
     Indication: NEURALGIA
  7. GABAPENTIN [Concomitant]
     Indication: FIBROMYALGIA
  8. XANAX [Concomitant]
     Indication: ANXIOLYTIC THERAPY
  9. LISINOPRIL [Concomitant]
     Indication: HYPERTENSION
  10. IBUPROFEN [Concomitant]
     Indication: ARTHRITIS
  11. IBUPROFEN [Concomitant]
     Indication: PAIN
  12. OMEPRAZOLE [Concomitant]
     Indication: GASTROOESOPHAGEAL REFLUX DISEASE
     Dates: start: 201304
  13. FLAX SEED OIL [Concomitant]
     Indication: CARDIAC DISORDER
  14. FISH OIL [Concomitant]
     Indication: CARDIAC DISORDER
  15. STOOL SOFTENER [Concomitant]
     Indication: CONSTIPATION

REACTIONS (4)
  - Arthralgia [Unknown]
  - Insomnia [Recovered/Resolved]
  - Haematemesis [Recovered/Resolved]
  - Gastrooesophageal reflux disease [Recovered/Resolved]
